FAERS Safety Report 4889754-8 (Version None)
Quarter: 2006Q1

REPORT INFORMATION
  Report Type: 
  Country: None (occurrence: None)
  Receive Date: 20060124
  Receipt Date: 20030121
  Transmission Date: 20060701
  Serious: Yes (Life-Threatening, Hospitalization, Disabling, Other)
  Sender: FDA-Public Use
  Company Number: US-MERCK-0301USA02077

PATIENT
  Age: 59 Year
  Sex: Male
  Weight: 136 kg

DRUGS (7)
  1. VIOXX [Suspect]
     Indication: ARTHRITIS
     Route: 048
     Dates: start: 20000911, end: 20020501
  2. ASPIRIN [Concomitant]
     Indication: HEADACHE
     Route: 065
     Dates: start: 19900101
  3. PAXIL [Concomitant]
     Indication: DEPRESSION
     Route: 065
     Dates: start: 19990101
  4. PLAVIX [Concomitant]
     Route: 065
  5. MICRO-K [Concomitant]
     Route: 065
  6. CARDIZEM [Concomitant]
     Route: 065
  7. THIAMINE [Concomitant]
     Route: 065

REACTIONS (42)
  - ARTERIOSCLEROSIS [None]
  - ATRIAL FIBRILLATION [None]
  - BLOOD TRIGLYCERIDES INCREASED [None]
  - BRONCHITIS [None]
  - CORONARY ARTERY RESTENOSIS [None]
  - CORONARY ARTERY STENOSIS [None]
  - DECREASED APPETITE [None]
  - DEPRESSION [None]
  - DIARRHOEA [None]
  - DIZZINESS [None]
  - DYSPHAGIA [None]
  - DYSPNOEA [None]
  - FATIGUE [None]
  - FLUSHING [None]
  - GASTROENTERITIS [None]
  - GUILLAIN-BARRE SYNDROME [None]
  - HAEMATOCRIT DECREASED [None]
  - HAEMOGLOBIN DECREASED [None]
  - HEART RATE IRREGULAR [None]
  - HYPERCHOLESTEROLAEMIA [None]
  - HYPERLIPIDAEMIA [None]
  - HYPERTENSION [None]
  - INCONTINENCE [None]
  - INFLUENZA LIKE ILLNESS [None]
  - MEMORY IMPAIRMENT [None]
  - MYOCARDIAL INFARCTION [None]
  - NAUSEA [None]
  - NEGATIVE THOUGHTS [None]
  - NON-CARDIAC CHEST PAIN [None]
  - PALPITATIONS [None]
  - PANIC ATTACK [None]
  - PNEUMONIA [None]
  - PYREXIA [None]
  - QUADRIPLEGIA [None]
  - RENAL FAILURE ACUTE [None]
  - SEBORRHOEIC DERMATITIS [None]
  - SEXUAL DYSFUNCTION [None]
  - SLEEP APNOEA SYNDROME [None]
  - SLEEP DISORDER [None]
  - SUICIDAL IDEATION [None]
  - VASCULAR PSEUDOANEURYSM [None]
  - VENTRICULAR HYPERTROPHY [None]
